FAERS Safety Report 25480955 (Version 1)
Quarter: 2025Q2

REPORT INFORMATION
  Report Type: Spontaneous
  Country: PL (occurrence: PL)
  Receive Date: 20250625
  Receipt Date: 20250625
  Transmission Date: 20250716
  Serious: Yes (Hospitalization, Other)
  Sender: Norvium Bioscience
  Company Number: PL-Norvium Bioscience LLC-080306

PATIENT
  Age: 62 Year
  Sex: Male

DRUGS (1)
  1. LITHIUM CARBONATE [Suspect]
     Active Substance: LITHIUM CARBONATE
     Indication: Bipolar disorder

REACTIONS (2)
  - Toxicity to various agents [Recovering/Resolving]
  - Cerebellar syndrome [Recovering/Resolving]
